FAERS Safety Report 5535323-6 (Version None)
Quarter: 2007Q4

REPORT INFORMATION
  Report Type: 
  Country: None (occurrence: None)
  Receive Date: 20071204
  Receipt Date: 20071121
  Transmission Date: 20080405
  Serious: Yes (Hospitalization, Other)
  Sender: FDA-Public Use
  Company Number: 233968K07USA

PATIENT
  Age: 62 Year
  Sex: Male
  Weight: 80.7403 kg

DRUGS (7)
  1. REBIF [Suspect]
     Indication: MULTIPLE SCLEROSIS
     Dosage: 33 MCG, 3 IN 1 WEEKS, SUBCUTANEOUS; 88 MCG, 3 IN 1 WEEKS, SUBCUTANEOUS
     Route: 058
     Dates: start: 20060209, end: 20070401
  2. REBIF [Suspect]
     Indication: MULTIPLE SCLEROSIS
     Dosage: 33 MCG, 3 IN 1 WEEKS, SUBCUTANEOUS; 88 MCG, 3 IN 1 WEEKS, SUBCUTANEOUS
     Route: 058
     Dates: start: 20071105, end: 20071101
  3. TOPROL (METROPROLOL SUCCINATE) [Concomitant]
  4. DIOVAN [Concomitant]
  5. ZOCOR [Concomitant]
  6. OMEPRAZOLE [Concomitant]
  7. ASPIRIN [Concomitant]

REACTIONS (6)
  - ATRIAL FIBRILLATION [None]
  - BRAIN NEOPLASM MALIGNANT [None]
  - CORONARY ARTERY OCCLUSION [None]
  - MYOCARDIAL INFARCTION [None]
  - PLATELET COUNT DECREASED [None]
  - SMALL CELL LUNG CANCER STAGE UNSPECIFIED [None]
